FAERS Safety Report 9508183 (Version 1)
Quarter: 2013Q3

REPORT INFORMATION
  Report Type: Spontaneous
  Country: US (occurrence: US)
  Receive Date: 20130909
  Receipt Date: 20130909
  Transmission Date: 20140515
  Serious: No
  Sender: FDA-Public Use
  Company Number: US-PFIZER INC-2013254907

PATIENT
  Age: 75 Year
  Sex: Female

DRUGS (3)
  1. ADVIL [Suspect]
     Dosage: UNK
  2. ALEVE [Suspect]
     Dosage: UNK
  3. ASPIRIN [Suspect]
     Dosage: UNK

REACTIONS (2)
  - Drug intolerance [Unknown]
  - Irritable bowel syndrome [Unknown]
